FAERS Safety Report 15126699 (Version 2)
Quarter: 2019Q4

REPORT INFORMATION
  Report Type: Spontaneous
  Country: GB (occurrence: GB)
  Receive Date: 20180710
  Receipt Date: 20191112
  Transmission Date: 20200122
  Serious: Yes (Life-Threatening, Other)
  Sender: FDA-Public Use
  Company Number: GB-PFIZER INC-2018273650

PATIENT
  Age: 41 Year
  Sex: Male
  Weight: 108 kg

DRUGS (1)
  1. VENLAFAXINE HCL [Suspect]
     Active Substance: VENLAFAXINE HYDROCHLORIDE
     Dosage: UNK
     Dates: start: 20180601

REACTIONS (4)
  - Intentional self-injury [Unknown]
  - Suicidal ideation [Recovered/Resolved with Sequelae]
  - Hallucination [Unknown]
  - Vision blurred [Unknown]

NARRATIVE: CASE EVENT DATE: 20180601
